FAERS Safety Report 13103584 (Version 1)
Quarter: 2017Q1

REPORT INFORMATION
  Report Type: Report from Study
  Country: FR (occurrence: FR)
  Receive Date: 20170111
  Receipt Date: 20170111
  Transmission Date: 20170428
  Serious: Yes (Other)
  Sender: FDA-Public Use
  Company Number: FR-ROCHE-1870235

PATIENT

DRUGS (8)
  1. ABATACEPT [Suspect]
     Active Substance: ABATACEPT
     Indication: RHEUMATOID ARTHRITIS
     Dosage: 500 TO 1000 MG, DOSED ACCORDING TO THE PATIENT^S WEIGHT, EVERY 14 DAYS UNTIL WEEK 4 AND ONCE MONTHLY
     Route: 042
  2. ADALIMUMAB [Suspect]
     Active Substance: ADALIMUMAB
     Indication: RHEUMATOID ARTHRITIS
     Route: 058
  3. CERTOLIZUMAB [Suspect]
     Active Substance: CERTOLIZUMAB
     Indication: RHEUMATOID ARTHRITIS
     Dosage: UNTIL WEEK 4
     Route: 058
  4. INFLIXIMAB [Suspect]
     Active Substance: INFLIXIMAB
     Indication: RHEUMATOID ARTHRITIS
     Dosage: INITIALLY, WITH THE POSSIBILITY OF ASCENDING DOSES AT WEEKS 2 AND 6 AND EVERY 8 WEEKS THEREAFTER
     Route: 042
  5. CERTOLIZUMAB [Suspect]
     Active Substance: CERTOLIZUMAB
     Dosage: AFTER WEEK 4
     Route: 058
  6. ETANERCEPT [Suspect]
     Active Substance: ETANERCEPT
     Indication: RHEUMATOID ARTHRITIS
     Route: 058
  7. RITUXIMAB [Suspect]
     Active Substance: RITUXIMAB
     Indication: RHEUMATOID ARTHRITIS
     Route: 042
  8. TOCILIZUMAB [Suspect]
     Active Substance: TOCILIZUMAB
     Indication: RHEUMATOID ARTHRITIS
     Route: 042

REACTIONS (18)
  - Lung adenocarcinoma [Unknown]
  - Tachycardia [Unknown]
  - Pruritus [Unknown]
  - Arthritis infective [Unknown]
  - Tuberculosis [Unknown]
  - Pharyngitis [Unknown]
  - Urinary tract infection [Unknown]
  - Hypersensitivity vasculitis [Unknown]
  - Skin infection [Unknown]
  - Neutropenia [Unknown]
  - Decreased appetite [Unknown]
  - Peripheral ischaemia [Unknown]
  - Ear infection [Unknown]
  - Cerebrovascular accident [Unknown]
  - Pneumonia [Unknown]
  - Rhinitis [Unknown]
  - Gastrointestinal infection [Unknown]
  - Anaemia [Unknown]
